FAERS Safety Report 4902721-0 (Version None)
Quarter: 2006Q1

REPORT INFORMATION
  Report Type: 
  Country: None (occurrence: None)
  Receive Date: 20060207
  Receipt Date: 20050922
  Transmission Date: 20060701
  Serious: Yes (Other)
  Sender: FDA-Public Use
  Company Number: PHNU2005DE03279

PATIENT
  Age: 14 Day
  Sex: Male
  Weight: 3.76 kg

DRUGS (2)
  1. METHERGINE [Suspect]
     Dosage: UNK, UNK
     Dates: start: 20050901, end: 20050901
  2. METHERGINE [Suspect]
     Dosage: UNK, UNK
     Dates: start: 20050901, end: 20050901

REACTIONS (5)
  - CONDITION AGGRAVATED [None]
  - DRUG EXPOSURE VIA BREAST MILK [None]
  - HYPERBILIRUBINAEMIA NEONATAL [None]
  - JAUNDICE [None]
  - JAUNDICE NEONATAL [None]
